FAERS Safety Report 5886360-3 (Version None)
Quarter: 2008Q3

REPORT INFORMATION
  Report Type: 
  Country: None (occurrence: None)
  Receive Date: 20080917
  Receipt Date: 20080908
  Transmission Date: 20090109
  Serious: Yes (Hospitalization, Other)
  Sender: FDA-Public Use
  Company Number: DK-ASTRAZENECA-2008SE04310

PATIENT
  Age: 20 Year
  Sex: Male

DRUGS (3)
  1. SEROQUEL [Suspect]
     Indication: SCHIZOPHRENIA
     Dosage: INITIALLY 50 MG GRADUALLY INCREASED TO 900 MG
     Route: 048
  2. CHLORPROTHIXENE [Concomitant]
     Dosage: 125 MG DAILY AND WHEN NEEDED, MAXIMAL 150 MG/DAY
  3. OXAZEPAM [Concomitant]
     Dosage: WHEN NEEDED, MAXIMAL 45 MG/DAY

REACTIONS (2)
  - LEUKOPENIA [None]
  - THROMBOCYTOPENIA [None]
